FAERS Safety Report 8592480 (Version 2)
Quarter: 2013Q1

REPORT INFORMATION
  Report Type: Spontaneous
  Country: US (occurrence: US)
  Receive Date: 20120601
  Receipt Date: 20130208
  Transmission Date: 20140127
  Serious: No
  Sender: FDA-Public Use
  Company Number: US-ASTRAZENECA-2011SE36401

PATIENT
  Age: 66 Year
  Sex: Female

DRUGS (5)
  1. ATACAND HCT [Suspect]
     Indication: BLOOD PRESSURE MANAGEMENT
     Route: 048
  2. ATACAND HCT [Suspect]
     Indication: BLOOD PRESSURE MANAGEMENT
     Dosage: HALF TABLET, UNKNOWN FREQUENCY
     Route: 048
  3. TOPROL XL [Suspect]
     Route: 048
  4. CRESTOR [Suspect]
     Indication: BLOOD CHOLESTEROL
     Route: 048
  5. LYRICA [Suspect]

REACTIONS (6)
  - Chills [Unknown]
  - Cold sweat [Unknown]
  - Hypotension [Unknown]
  - Nausea [Unknown]
  - Dizziness [Unknown]
  - Cough [Unknown]
